FAERS Safety Report 9147591 (Version 1)
Quarter: 2013Q1

REPORT INFORMATION
  Report Type: Spontaneous
  Country: US (occurrence: US)
  Receive Date: 20130307
  Receipt Date: 20130307
  Transmission Date: 20140127
  Serious: No
  Sender: FDA-Public Use
  Company Number: US-ASTRAZENECA-2013SE10558

PATIENT
  Sex: Female

DRUGS (3)
  1. ARIMIDEX [Suspect]
     Route: 048
  2. ZOLOFT [Suspect]
     Route: 048
  3. NEURONTIN [Suspect]
     Route: 065

REACTIONS (1)
  - Hypothyroidism [Unknown]
